FAERS Safety Report 8497987 (Version 2)
Quarter: 2013Q3

REPORT INFORMATION
  Report Type: Spontaneous
  Country: US (occurrence: None)
  Receive Date: 20120402
  Receipt Date: 20130801
  Transmission Date: 20140515
  Serious: Yes (Disabling, Other)
  Sender: FDA-Public Use
  Company Number: 2012AP000791

PATIENT
  Sex: Female

DRUGS (1)
  1. ALENDRONATE SODIUM TABLETS [Suspect]
     Indication: OSTEOPOROSIS
     Dates: start: 201002, end: 201003

REACTIONS (11)
  - Condition aggravated [None]
  - Bone density decreased [None]
  - Femur fracture [None]
  - Osteogenesis imperfecta [None]
  - Anxiety [None]
  - Emotional distress [None]
  - Low turnover osteopathy [None]
  - Fear of disease [None]
  - Toxicity to various agents [None]
  - Anhedonia [None]
  - Terminal state [None]
